FAERS Safety Report 25057103 (Version 1)
Quarter: 2025Q1

REPORT INFORMATION
  Report Type: Spontaneous
  Country: US (occurrence: US)
  Receive Date: 20250310
  Receipt Date: 20250310
  Transmission Date: 20250409
  Serious: No
  Sender: STRIDES
  Company Number: US-STRIDES ARCOLAB LIMITED-2024SP015424

PATIENT
  Age: 42 Year
  Sex: Female

DRUGS (2)
  1. TENOFOVIR DISOPROXIL FUMARATE [Suspect]
     Active Substance: TENOFOVIR DISOPROXIL FUMARATE
     Indication: Hepatitis D
     Route: 065
  2. BULEVIRTIDE [Concomitant]
     Active Substance: BULEVIRTIDE
     Indication: Hepatitis D
     Route: 065

REACTIONS (1)
  - Off label use [Unknown]
